FAERS Safety Report 11512912 (Version 2)
Quarter: 2016Q1

REPORT INFORMATION
  Report Type: Spontaneous
  Country: US (occurrence: US)
  Receive Date: 20150903
  Receipt Date: 20160106
  Transmission Date: 20160525
  Serious: No
  Sender: FDA-Public Use
  Company Number: US-ELI_LILLY_AND_COMPANY-US201004007829

PATIENT
  Age: 73 Year
  Sex: Male

DRUGS (6)
  1. HUMALOG [Suspect]
     Active Substance: INSULIN LISPRO
     Dosage: 6 U, OTHER
     Route: 065
     Dates: start: 201002
  2. HUMALOG [Suspect]
     Active Substance: INSULIN LISPRO
     Dosage: 4 U, EACH MORNING
     Route: 065
  3. HUMALOG [Suspect]
     Active Substance: INSULIN LISPRO
     Dosage: 6 U, EACH EVENING
     Route: 065
  4. HUMALOG [Suspect]
     Active Substance: INSULIN LISPRO
     Dosage: 8 U, OTHER
     Route: 065
     Dates: start: 201002
  5. HUMALOG [Suspect]
     Active Substance: INSULIN LISPRO
     Indication: TYPE 2 DIABETES MELLITUS
     Dosage: 9 U, OTHER
     Route: 065
     Dates: start: 201002
  6. HUMALOG [Suspect]
     Active Substance: INSULIN LISPRO
     Dosage: 4 U, QD
     Route: 065

REACTIONS (5)
  - Blood glucose increased [Unknown]
  - Drug dose omission [Unknown]
  - Visual acuity reduced [Not Recovered/Not Resolved]
  - Poor quality drug administered [Unknown]
  - Incorrect dose administered [Unknown]

NARRATIVE: CASE EVENT DATE: 201004
